FAERS Safety Report 20203277 (Version 1)
Quarter: 2021Q4

REPORT INFORMATION
  Report Type: Spontaneous
  Country: FR (occurrence: None)
  Receive Date: 20211218
  Receipt Date: 20211218
  Transmission Date: 20220303
  Serious: Yes (Hospitalization)
  Sender: FDA-Public Use
  Company Number: None

PATIENT
  Age: 42 Year
  Sex: Female
  Weight: 51 kg

DRUGS (2)
  1. AVASTIN [Suspect]
     Active Substance: BEVACIZUMAB
     Indication: Bronchial carcinoma
     Route: 042
     Dates: start: 20200424, end: 20210125
  2. AVASTIN [Suspect]
     Active Substance: BEVACIZUMAB
     Dosage: ON 30/APR/2020, MOST RECENT DOSE
     Route: 042
     Dates: start: 20190911

REACTIONS (1)
  - Congestive cardiomyopathy [Recovered/Resolved]

NARRATIVE: CASE EVENT DATE: 20200421
